FAERS Safety Report 9402090 (Version 4)
Quarter: 2013Q3

REPORT INFORMATION
  Report Type: Spontaneous
  Country: US (occurrence: US)
  Receive Date: 20130716
  Receipt Date: 20130930
  Transmission Date: 20140515
  Serious: No
  Sender: FDA-Public Use
  Company Number: US-PFIZER INC-2013206007

PATIENT
  Age: 17 Year
  Sex: Female

DRUGS (3)
  1. XELJANZ [Suspect]
     Indication: RHEUMATOID ARTHRITIS
     Dosage: UNK
     Dates: start: 20120911, end: 201211
  2. XELJANZ [Suspect]
     Dosage: 5 MG, 2X/DAY
     Route: 048
     Dates: start: 201304
  3. PREDNISONE [Concomitant]
     Dosage: 1 MG, UNK

REACTIONS (5)
  - Irritable bowel syndrome [Unknown]
  - Glossodynia [Recovered/Resolved]
  - Lip pain [Recovered/Resolved]
  - Food allergy [Recovered/Resolved]
  - Fatigue [Recovered/Resolved]
